FAERS Safety Report 5328714-X (Version None)
Quarter: 2007Q2

REPORT INFORMATION
  Report Type: 
  Country: None (occurrence: None)
  Receive Date: 20070518
  Receipt Date: 20070509
  Transmission Date: 20071010
  Serious: Yes (Disabling)
  Sender: FDA-Public Use
  Company Number: ZA-ROCHE-492890

PATIENT
  Age: 23 Year
  Sex: Female
  Weight: 52 kg

DRUGS (1)
  1. ROACCUTANE [Suspect]
     Indication: ACNE
     Dosage: REPORTED AS ROACCUTANED (INTERMITTENTLY). STRENGTH REPORTED AS 20 MG THEN 10 MG. FULL DOSAGES WERE +
     Route: 048
     Dates: start: 19970101, end: 20070406

REACTIONS (2)
  - ARTHRITIS [None]
  - RHEUMATOID FACTOR INCREASED [None]
